FAERS Safety Report 7197170-1 (Version None)
Quarter: 2010Q4

REPORT INFORMATION
  Report Type: 
  Country: None (occurrence: None)
  Receive Date: 20101224
  Receipt Date: 20101213
  Transmission Date: 20110411
  Serious: Yes (Disabling, Other)
  Sender: FDA-Public Use
  Company Number: PHHY2010US71382

PATIENT
  Sex: Female
  Weight: 66 kg

DRUGS (1)
  1. GLEEVEC [Suspect]
     Indication: CHRONIC MYELOID LEUKAEMIA
     Dosage: 300 MG, QD
     Route: 048
     Dates: start: 20010101

REACTIONS (2)
  - RETINAL VEIN OCCLUSION [None]
  - RETINAL VEIN THROMBOSIS [None]
